FAERS Safety Report 5466078-1 (Version None)
Quarter: 2007Q3

REPORT INFORMATION
  Report Type: 
  Country: None (occurrence: None)
  Receive Date: 20070924
  Receipt Date: 20070912
  Transmission Date: 20080115
  Serious: Yes (Other)
  Sender: FDA-Public Use
  Company Number: BE-ELI_LILLY_AND_COMPANY-BE200708001351

PATIENT
  Age: 14 Year
  Sex: Male

DRUGS (2)
  1. STRATTERA [Suspect]
     Indication: ATTENTION DEFICIT/HYPERACTIVITY DISORDER
     Dosage: 40 MG, UNK
     Route: 048
     Dates: start: 20070101, end: 20070829
  2. STRATTERA [Suspect]
     Dosage: UNK, UNKNOWN
     Route: 065
     Dates: start: 20070619

REACTIONS (1)
  - WOLFF-PARKINSON-WHITE SYNDROME [None]
